FAERS Safety Report 18490319 (Version 3)
Quarter: 2021Q1

REPORT INFORMATION
  Report Type: Spontaneous
  Country: US (occurrence: US)
  Receive Date: 20201111
  Receipt Date: 20210225
  Transmission Date: 20210419
  Serious: Yes (Other)
  Sender: FDA-Public Use
  Company Number: US-PFIZER INC-2015292048

PATIENT
  Age: 78 Year
  Sex: Male

DRUGS (7)
  1. LYRICA [Suspect]
     Active Substance: PREGABALIN
     Dosage: 225 MG, 1X/DAY (TAKE 1 CAPSULE NIGHTLY. ALONG THE 75 MG CAPSULES)
     Route: 048
  2. LYRICA [Suspect]
     Active Substance: PREGABALIN
     Indication: NEPHROPATHY
     Dosage: 225 MG, 3X/DAY (TAKE 1 CAPSULE OF 150 MG ALONG THE 75 MG CAPSULE, 3 TIMES DAILY)
     Route: 048
  3. LYRICA [Suspect]
     Active Substance: PREGABALIN
     Dosage: 600 MG, DAILY  (TAKE 1 CAPSULE 8 TIMES DAILY)
     Route: 048
  4. LYRICA [Suspect]
     Active Substance: PREGABALIN
     Dosage: 75 MG, 3X/DAY (1 CAPSULE 3 TIMES DAILY)
  5. LYRICA [Suspect]
     Active Substance: PREGABALIN
     Dosage: 150 MG, 3X/DAY (MAY TAKE ALONG WITH ADDITIONAL 75MG AT NIGHT AS NEEDED)
     Route: 048
  6. LYRICA [Suspect]
     Active Substance: PREGABALIN
     Indication: DIABETIC NEUROPATHY
     Dosage: 75 MG, 3X/DAY (TAKES WITH THE 150 MG^S)
     Route: 048
  7. LYRICA [Suspect]
     Active Substance: PREGABALIN
     Indication: NEPHRITIS
     Dosage: 150 MG, 1X/DAY (1 CAP AT BEDTIME (TAKES WITH 75 MG^S)
     Route: 048

REACTIONS (2)
  - Prescribed overdose [Unknown]
  - Fall [Unknown]
